FAERS Safety Report 4905951-7 (Version None)
Quarter: 2006Q1

REPORT INFORMATION
  Report Type: 
  Country: None (occurrence: None)
  Receive Date: 20060206
  Receipt Date: 20060123
  Transmission Date: 20060701
  Serious: Yes (Disabling, Other)
  Sender: FDA-Public Use
  Company Number: 2006012131

PATIENT
  Age: 53 Year
  Sex: Male
  Weight: 58.9676 kg

DRUGS (3)
  1. GLUCOTROL [Suspect]
     Indication: DIABETES MELLITUS
     Dosage: 2.5 MG (2.5 MG, 1 IN 1 D)
     Dates: start: 19970101
  2. PREVACID [Concomitant]
  3. METFORMIN HCL [Concomitant]

REACTIONS (6)
  - ASTHENIA [None]
  - BACK DISORDER [None]
  - CHILLS [None]
  - HEPATIC CIRRHOSIS [None]
  - IMPAIRED WORK ABILITY [None]
  - TREATMENT NONCOMPLIANCE [None]
